FAERS Safety Report 7799387-1 (Version None)
Quarter: 2011Q4

REPORT INFORMATION
  Report Type: 
  Country: None (occurrence: None)
  Receive Date: 20111004
  Receipt Date: 20110926
  Transmission Date: 20120403
  Serious: Yes (Other)
  Sender: FDA-Public Use
  Company Number: 201111213

PATIENT
  Sex: Male

DRUGS (3)
  1. LIORESAL [Suspect]
     Indication: MUSCLE SPASTICITY
     Dosage: 71.1 MCG, DAILY, INTRATHECAL
     Route: 037
  2. MORPHINE SULFATE [Concomitant]
  3. BUPIVACAINE HCL [Concomitant]

REACTIONS (4)
  - IMPLANT SITE INFECTION [None]
  - PURULENCE [None]
  - IMPLANT SITE ULCER [None]
  - IMPLANT SITE ERYTHEMA [None]
